FAERS Safety Report 6734407-4 (Version None)
Quarter: 2010Q2

REPORT INFORMATION
  Report Type: 
  Country: None (occurrence: None)
  Receive Date: 20100520
  Receipt Date: 20100511
  Transmission Date: 20101027
  Serious: Yes (Other)
  Sender: FDA-Public Use
  Company Number: CHPA2010US08498

PATIENT
  Age: 51 Year
  Sex: Female
  Weight: 68.027 kg

DRUGS (2)
  1. VOLTAREN [Suspect]
     Indication: INFLAMMATION
     Dosage: UNK, UNK
     Route: 061
     Dates: start: 20091101
  2. VOLTAREN [Suspect]
     Indication: SWELLING
     Dosage: UNK, UNK
     Route: 061
     Dates: start: 20100510, end: 20100510

REACTIONS (6)
  - APPLICATION SITE VESICLES [None]
  - DRUG ADMINISTERED AT INAPPROPRIATE SITE [None]
  - OFF LABEL USE [None]
  - RASH [None]
  - SURGERY [None]
  - TENDON INJURY [None]
